FAERS Safety Report 13815087 (Version 1)
Quarter: 2017Q3

REPORT INFORMATION
  Report Type: Report from Study
  Country: US (occurrence: PL)
  Receive Date: 20170731
  Receipt Date: 20170731
  Transmission Date: 20171127
  Serious: Yes (Death, Hospitalization, Other)
  Sender: FDA-Public Use
  Company Number: US-PFIZER INC-775825

PATIENT
  Age: 76 Year
  Sex: Female

DRUGS (14)
  1. CILAZAPRIL [Concomitant]
     Active Substance: CILAZAPRIL ANHYDROUS
     Indication: HYPERTENSION
     Dosage: 2.5 MG, 1X/DAY
     Route: 048
     Dates: start: 20070206
  2. FORMOTEROL FUMARATE [Concomitant]
     Active Substance: FORMOTEROL FUMARATE
     Indication: BRONCHITIS CHRONIC
     Dosage: 12 UG, 2X/DAY
     Route: 055
     Dates: start: 20070319
  3. PIRACETAM [Concomitant]
     Active Substance: PIRACETAM
     Indication: ISCHAEMIC STROKE
     Dosage: 1200 MG, 2X/DAY
     Route: 048
     Dates: start: 20070206
  4. AMLODIPINE [Concomitant]
     Active Substance: AMLODIPINE BESYLATE
     Indication: HYPERTENSION
     Dosage: 5 MG, 1X/DAY
     Route: 048
     Dates: start: 20070226
  5. KETOCONAZOLE. [Concomitant]
     Active Substance: KETOCONAZOLE
     Indication: ANTIFUNGAL PROPHYLAXIS
     Dosage: 200 MG, 1X/DAY
     Route: 048
     Dates: start: 20070625, end: 20070626
  6. MIANSERIN HYDROCHLORIDE [Concomitant]
     Active Substance: MIANSERIN HYDROCHLORIDE
     Indication: NEUROSIS
     Dosage: 30 MG, 1X/DAY
     Route: 048
     Dates: start: 20070226
  7. AMOXICILLIN. [Concomitant]
     Active Substance: AMOXICILLIN
     Indication: INFECTION PROPHYLAXIS
     Dosage: 500 MG, 3X/DAY
     Route: 048
     Dates: start: 20070625, end: 20070626
  8. INSULIN MIXTARD HUMAN [Concomitant]
     Indication: DIABETES MELLITUS
     Dosage: UNK, 1X/DAY
     Route: 058
     Dates: start: 20070206
  9. FUROSEMIDE. [Concomitant]
     Active Substance: FUROSEMIDE
     Indication: CARDIOVASCULAR INSUFFICIENCY
     Dosage: 20 MG, 1X/DAY
     Route: 048
     Dates: start: 20070301, end: 20070703
  10. CYTARABINE. [Suspect]
     Active Substance: CYTARABINE
     Indication: ACUTE MYELOID LEUKAEMIA
     Dosage: 20 MG/M2, CYCLIC (EVERY 28 DAYS)
     Route: 058
     Dates: start: 20070218, end: 20070606
  11. CYTARABINE. [Suspect]
     Active Substance: CYTARABINE
     Dosage: 20 MG/M2, CYCLIC (EVERY 28 DAYS)
     Route: 058
     Dates: start: 20070828, end: 20070906
  12. METAMIZOL /06276702/ [Concomitant]
     Active Substance: METAMIZOLE
     Indication: FEBRILE NEUTROPENIA
     Dosage: 1 G, AS NEEDED
     Route: 042
     Dates: start: 20070628, end: 20070628
  13. METOPROLOL. [Concomitant]
     Active Substance: METOPROLOL
     Indication: HYPERTENSION
     Dosage: 50 MG, 1X/DAY
     Route: 048
     Dates: start: 20000101
  14. THEOPHYLLINE [Concomitant]
     Active Substance: THEOPHYLLINE ANHYDROUS
     Indication: DYSPNOEA
     Dosage: 300 MG, 2X/DAY
     Route: 048
     Dates: start: 20070212

REACTIONS (3)
  - Pneumonia [Recovered/Resolved]
  - Death [Fatal]
  - Hypertransaminasaemia [Recovered/Resolved]

NARRATIVE: CASE EVENT DATE: 20070625
